FAERS Safety Report 24622865 (Version 1)
Quarter: 2024Q4

REPORT INFORMATION
  Report Type: Spontaneous
  Country: US (occurrence: US)
  Receive Date: 20241115
  Receipt Date: 20241115
  Transmission Date: 20250115
  Serious: Yes (Other)
  Sender: ABBVIE
  Company Number: US-ABBVIE-6005793

PATIENT
  Age: 5 Year
  Sex: Female

DRUGS (5)
  1. VENETOCLAX [Suspect]
     Active Substance: VENETOCLAX
     Indication: NPM1 gene mutation
     Dosage: ON DAYS 4-21 DURING THE FIRST CYCLE AND DAYS 4-14 DURING THE SECOND CYCLE
     Route: 048
  2. VENETOCLAX [Suspect]
     Active Substance: VENETOCLAX
     Indication: NPM1 gene mutation
     Dosage: DAY 1
     Route: 048
  3. VENETOCLAX [Suspect]
     Active Substance: VENETOCLAX
     Indication: NPM1 gene mutation
     Dosage: DAY 3
     Route: 048
  4. VENETOCLAX [Suspect]
     Active Substance: VENETOCLAX
     Indication: NPM1 gene mutation
     Dosage: DAY 2
     Route: 048
  5. AZACITIDINE [Suspect]
     Active Substance: AZACITIDINE
     Indication: NPM1 gene mutation
     Dosage: FOR 1 WEEK
     Route: 065

REACTIONS (1)
  - Subdural haematoma [Unknown]
